FAERS Safety Report 22194316 (Version 8)
Quarter: 2023Q4

REPORT INFORMATION
  Report Type: Report from Study
  Country: US (occurrence: US)
  Receive Date: 20230411
  Receipt Date: 20231212
  Transmission Date: 20240110
  Serious: Yes (Hospitalization)
  Sender: FDA-Public Use
  Company Number: US-BoehringerIngelheim-2023-BI-221232

PATIENT
  Age: 80 Year
  Sex: Female

DRUGS (3)
  1. OFEV [Suspect]
     Active Substance: NINTEDANIB
     Indication: Idiopathic pulmonary fibrosis
     Route: 048
     Dates: start: 20201203
  2. ELIQUIS [Concomitant]
     Active Substance: APIXABAN
  3. ELIQUIS [Concomitant]
     Active Substance: APIXABAN
     Indication: Product used for unknown indication

REACTIONS (23)
  - Diarrhoea [Recovered/Resolved]
  - Haemorrhage [Recovered/Resolved]
  - Gastrointestinal haemorrhage [Unknown]
  - COVID-19 [Unknown]
  - Fall [Unknown]
  - Pain in extremity [Not Recovered/Not Resolved]
  - Fall [Unknown]
  - Peripheral swelling [Unknown]
  - Diarrhoea [Not Recovered/Not Resolved]
  - Faeces discoloured [Unknown]
  - Decreased appetite [Unknown]
  - Weight decreased [Unknown]
  - Asthenia [Unknown]
  - Nausea [Unknown]
  - Abdominal discomfort [Unknown]
  - Colitis [Unknown]
  - Constipation [Unknown]
  - Influenza [Recovered/Resolved]
  - Sinus pain [Unknown]
  - Nasal crusting [Unknown]
  - Epistaxis [Unknown]
  - Viral infection [Unknown]
  - Cough [Unknown]

NARRATIVE: CASE EVENT DATE: 20230101
